FAERS Safety Report 7449265-2 (Version None)
Quarter: 2011Q2

REPORT INFORMATION
  Report Type: 
  Country: None (occurrence: None)
  Receive Date: 20110502
  Receipt Date: 20110421
  Transmission Date: 20111010
  Serious: No
  Sender: FDA-Public Use
  Company Number: US-BIOGENIDEC-2010BI013949

PATIENT
  Age: 50 Year
  Sex: Male

DRUGS (1)
  1. TYSABRI [Suspect]
     Indication: MULTIPLE SCLEROSIS
     Route: 042
     Dates: start: 20100211

REACTIONS (13)
  - ARTHRALGIA [None]
  - GAIT DISTURBANCE [None]
  - STRESS [None]
  - NOCTURIA [None]
  - SENSORY DISTURBANCE [None]
  - WEIGHT DECREASED [None]
  - DRUG INEFFECTIVE [None]
  - ASTHENIA [None]
  - FRUSTRATION [None]
  - BALANCE DISORDER [None]
  - PAIN [None]
  - FATIGUE [None]
  - SLUGGISHNESS [None]
